FAERS Safety Report 7121632-6 (Version None)
Quarter: 2010Q4

REPORT INFORMATION
  Report Type: 
  Country: None (occurrence: None)
  Receive Date: 20101124
  Receipt Date: 20091203
  Transmission Date: 20110411
  Serious: No
  Sender: FDA-Public Use
  Company Number: US-PFIZER INC-2009294620

PATIENT
  Sex: Female
  Weight: 68.027 kg

DRUGS (9)
  1. TIKOSYN [Suspect]
     Indication: ATRIAL FIBRILLATION
     Dosage: 250 UG, 2X/DAY
  2. PREDNISONE [Interacting]
  3. COZAAR [Concomitant]
  4. MONTELUKAST SODIUM [Concomitant]
     Indication: HYPERSENSITIVITY
  5. NORVASC [Concomitant]
  6. CRESTOR [Concomitant]
  7. WARFARIN [Concomitant]
  8. ACETYLSALICYLIC ACID [Concomitant]
     Dosage: 81 MG,UNK
  9. NEXIUM [Concomitant]
     Indication: GASTROOESOPHAGEAL REFLUX DISEASE

REACTIONS (7)
  - DISORIENTATION [None]
  - DIZZINESS [None]
  - DRUG INTERACTION [None]
  - HEADACHE [None]
  - INTRAOCULAR PRESSURE INCREASED [None]
  - NAUSEA [None]
  - RASH [None]
